FAERS Safety Report 4971539-5 (Version None)
Quarter: 2006Q2

REPORT INFORMATION
  Report Type: 
  Country: None (occurrence: None)
  Receive Date: 20060406
  Receipt Date: 20060323
  Transmission Date: 20061013
  Serious: Yes (Death)
  Sender: FDA-Public Use
  Company Number: 2006P1000235

PATIENT
  Age: 73 Year
  Sex: Male
  Weight: 95 kg

DRUGS (5)
  1. RETEPLASE (RETEPLASE) [Suspect]
     Indication: ACUTE MYOCARDIAL INFARCTION
     Dosage: 5 IU X1 IVB
     Route: 040
     Dates: start: 20050401, end: 20050401
  2. REOPRO [Suspect]
     Indication: ACUTE MYOCARDIAL INFARCTION
     Dosage: 11.9 ML X1 IVB ; 4.0 ML QH  IV
     Route: 040
     Dates: start: 20050401, end: 20050401
  3. ASPIRIN [Concomitant]
  4. BETA BLOCKING AGENTS [Concomitant]
  5. HEPARIN [Concomitant]

REACTIONS (6)
  - BLOOD CREATINE PHOSPHOKINASE INCREASED [None]
  - BLOOD CREATINE PHOSPHOKINASE MB INCREASED [None]
  - BRONCHOPNEUMONIA [None]
  - EJECTION FRACTION DECREASED [None]
  - RENAL FAILURE ACUTE [None]
  - TROPONIN I INCREASED [None]
